FAERS Safety Report 16719484 (Version 2)
Quarter: 2019Q3

REPORT INFORMATION
  Report Type: Spontaneous
  Country: US (occurrence: US)
  Receive Date: 20190820
  Receipt Date: 20190829
  Transmission Date: 20191005
  Serious: Yes (Other)
  Sender: FDA-Public Use
  Company Number: US-DRREDDYS-USA/USA/19/0113476

PATIENT
  Age: 28 Year
  Sex: Male

DRUGS (10)
  1. IDARUBICIN [Suspect]
     Active Substance: IDARUBICIN
     Indication: ACUTE MYELOID LEUKAEMIA
  2. FLUDARABINE [Suspect]
     Active Substance: FLUDARABINE PHOSPHATE
     Indication: ACUTE MYELOID LEUKAEMIA
  3. CYTARABINE. [Suspect]
     Active Substance: CYTARABINE
     Indication: ACUTE MYELOID LEUKAEMIA
  4. CYTARABINE. [Suspect]
     Active Substance: CYTARABINE
  5. ANTITHYMOCYTE GLOBULIN [Suspect]
     Active Substance: THYMOCYTE IMMUNE GLOBULIN NOS
     Indication: ACUTE MYELOID LEUKAEMIA
  6. BUSULFAN. [Suspect]
     Active Substance: BUSULFAN
     Indication: ACUTE MYELOID LEUKAEMIA
  7. TACROLIMUS. [Suspect]
     Active Substance: TACROLIMUS
     Indication: GRAFT VERSUS HOST DISEASE
  8. SORAFENIB [Suspect]
     Active Substance: SORAFENIB
     Indication: GRAFT VERSUS HOST DISEASE
     Dosage: AT REDUCED DOSE
  9. AZACITIDINE. [Suspect]
     Active Substance: AZACITIDINE
     Indication: ACUTE MYELOID LEUKAEMIA
  10. PREDNISONE. [Suspect]
     Active Substance: PREDNISONE
     Indication: GRAFT VERSUS HOST DISEASE

REACTIONS (5)
  - Adrenal insufficiency [Unknown]
  - Arterial occlusive disease [Unknown]
  - Graft versus host disease [Unknown]
  - Osteonecrosis [Unknown]
  - Hyperglycaemia [Unknown]
